FAERS Safety Report 20462492 (Version 7)
Quarter: 2022Q3

REPORT INFORMATION
  Report Type: Report from Study
  Country: US (occurrence: US)
  Receive Date: 20220211
  Receipt Date: 20220805
  Transmission Date: 20221027
  Serious: No
  Sender: FDA-Public Use
  Company Number: US-NOVARTISTESTPH-NVSC2022US029265

PATIENT
  Sex: Male

DRUGS (2)
  1. ENTRESTO [Suspect]
     Active Substance: SACUBITRIL\VALSARTAN
     Indication: Product used for unknown indication
     Dosage: 1 DOSAGE FORM (24/26 MG)
     Route: 048
     Dates: start: 202201
  2. TOPIRAMATE [Concomitant]
     Active Substance: TOPIRAMATE
     Indication: Orthostatic hypotension
     Dosage: UNK
     Route: 065

REACTIONS (12)
  - Nail growth abnormal [Not Recovered/Not Resolved]
  - Dyspnoea exertional [Unknown]
  - Dry skin [Unknown]
  - Weight decreased [Unknown]
  - Pain in extremity [Unknown]
  - Seasonal allergy [Unknown]
  - Cough [Unknown]
  - Rhinorrhoea [Unknown]
  - Dizziness postural [Unknown]
  - Fatigue [Unknown]
  - Hypersensitivity [Unknown]
  - Pruritus [Unknown]
